FAERS Safety Report 24878566 (Version 2)
Quarter: 2025Q4

REPORT INFORMATION
  Report Type: Spontaneous
  Country: US (occurrence: US)
  Receive Date: 20250123
  Receipt Date: 20251210
  Transmission Date: 20260117
  Serious: Yes (Other)
  Sender: PFIZER
  Company Number: US-PFIZER INC-202500014435

PATIENT
  Age: 40 Year
  Sex: Male

DRUGS (1)
  1. VELSIPITY [Suspect]
     Active Substance: ETRASIMOD ARGININE
     Dosage: 2 MG, 1X/DAY
     Route: 048

REACTIONS (13)
  - Haematochezia [Not Recovered/Not Resolved]
  - Colitis [Unknown]
  - Rectal haemorrhage [Unknown]
  - Therapeutic product effect incomplete [Unknown]
  - Mucous stools [Unknown]
  - Diarrhoea [Recovering/Resolving]
  - Flatulence [Unknown]
  - Defaecation urgency [Not Recovered/Not Resolved]
  - Anaemia [Unknown]
  - Migraine [Unknown]
  - Fear of injection [Unknown]
  - Abdominal pain [Unknown]
  - Inflammation [Unknown]

NARRATIVE: CASE EVENT DATE: 20240708
